FAERS Safety Report 7539000-1 (Version None)
Quarter: 2011Q2

REPORT INFORMATION
  Report Type: 
  Country: None (occurrence: None)
  Receive Date: 20110610
  Receipt Date: 20110531
  Transmission Date: 20111010
  Serious: Yes (Other)
  Sender: FDA-Public Use
  Company Number: JP-BAYER-201012179BYL

PATIENT
  Age: 50 Year
  Sex: Female
  Weight: 55 kg

DRUGS (2)
  1. MIRENA [Suspect]
     Indication: CONTRACEPTION
     Dosage: 20 ?G (DAILY DOSE), CONT, INTRA-UTERINE
     Route: 015
     Dates: start: 20080717, end: 20090311
  2. TOMIRON [Concomitant]
     Indication: INFECTION PROPHYLAXIS
     Dosage: 300 MG (DAILY DOSE), , ORAL
     Route: 048
     Dates: start: 20080717, end: 20080718

REACTIONS (4)
  - DEVICE EXPULSION [None]
  - METRORRHAGIA [None]
  - UTERINE HAEMORRHAGE [None]
  - ANAEMIA [None]
